FAERS Safety Report 20612805 (Version 14)
Quarter: 2023Q4

REPORT INFORMATION
  Report Type: Report from Study
  Country: US (occurrence: US)
  Receive Date: 20220318
  Receipt Date: 20231215
  Transmission Date: 20240109
  Serious: Yes (Hospitalization, Other)
  Sender: FDA-Public Use
  Company Number: US-JAZZ-2021-US-021534

PATIENT
  Age: 50 Year
  Sex: Female

DRUGS (7)
  1. XYWAV [Suspect]
     Active Substance: CALCIUM OXYBATE\MAGNESIUM OXYBATE\POTASSIUM OXYBATE\SODIUM OXYBATE
     Indication: Narcolepsy
     Dosage: 1 GRAM, BID
     Route: 048
     Dates: start: 202109, end: 202110
  2. XYWAV [Suspect]
     Active Substance: CALCIUM OXYBATE\MAGNESIUM OXYBATE\POTASSIUM OXYBATE\SODIUM OXYBATE
     Indication: Cataplexy
     Dosage: DOSE ADJUSTMENTS
     Route: 048
     Dates: start: 202110, end: 202110
  3. XYWAV [Suspect]
     Active Substance: CALCIUM OXYBATE\MAGNESIUM OXYBATE\POTASSIUM OXYBATE\SODIUM OXYBATE
     Indication: Somnolence
     Dosage: 2.5 GRAM, BID
     Route: 048
     Dates: start: 202110
  4. ELIQUIS [Concomitant]
     Active Substance: APIXABAN
     Indication: Product used for unknown indication
     Dosage: UNK
     Dates: start: 20220101
  5. TREZIX [Concomitant]
     Active Substance: ACETAMINOPHEN\CAFFEINE\DIHYDROCODEINE BITARTRATE
     Indication: Product used for unknown indication
     Dosage: 320.5-30-16 MG
     Dates: start: 20171001
  6. NITROGLYCERIN [Concomitant]
     Active Substance: NITROGLYCERIN
     Indication: Product used for unknown indication
     Dosage: UNK
     Dates: start: 20060101
  7. PANTOPRAZOLE SODIUM ANHYDROUS [Concomitant]
     Active Substance: PANTOPRAZOLE SODIUM ANHYDROUS
     Indication: Product used for unknown indication
     Dosage: UNK
     Dates: start: 20230201

REACTIONS (28)
  - Seizure [Unknown]
  - Myocardial infarction [Unknown]
  - Aortic stenosis [Unknown]
  - Brain injury [Recovering/Resolving]
  - Condition aggravated [Recovering/Resolving]
  - Renal failure [Unknown]
  - Swelling [Recovering/Resolving]
  - Intracranial pressure increased [Unknown]
  - Skull fracture [Unknown]
  - Loss of personal independence in daily activities [Unknown]
  - Haematemesis [Unknown]
  - Acute respiratory failure [Unknown]
  - Respiratory syncytial virus infection [Recovered/Resolved]
  - Hepatic failure [Unknown]
  - Pneumonia [Unknown]
  - Sepsis [Unknown]
  - Coma [Unknown]
  - Lung disorder [Unknown]
  - Stress [Unknown]
  - Mydriasis [Unknown]
  - Headache [Unknown]
  - Pain [Unknown]
  - Fatigue [Unknown]
  - Amnesia [Unknown]
  - Drug titration error [Unknown]
  - Product administration interrupted [Unknown]
  - Product dose omission issue [Unknown]
  - Anxiety [Unknown]

NARRATIVE: CASE EVENT DATE: 20230801
